FAERS Safety Report 4290185-2 (Version None)
Quarter: 2004Q1

REPORT INFORMATION
  Report Type: 
  Country: None (occurrence: None)
  Receive Date: 20040126
  Receipt Date: 20030819
  Transmission Date: 20041129
  Serious: No
  Sender: FDA-Public Use
  Company Number: USA030537367

PATIENT
  Age: 75 Year
  Sex: Female
  Weight: 53 kg

DRUGS (7)
  1. FORTEO [Suspect]
     Indication: OSTEOPOROSIS
     Dosage: 20 UG/DAY
     Dates: start: 20030322
  2. EVISTA [Suspect]
     Indication: OSTEOPOROSIS
     Dosage: 60 MG/DAY
     Dates: start: 19980101, end: 20030315
  3. GLUCOSAMINE [Concomitant]
  4. OSCAL 500-D [Concomitant]
  5. VITAMIN E [Concomitant]
  6. FOSAMAX [Concomitant]
  7. ACCUPRIL [Concomitant]

REACTIONS (9)
  - BACK PAIN [None]
  - BONE DENSITY DECREASED [None]
  - DIZZINESS [None]
  - HYPOTENSION [None]
  - INITIAL INSOMNIA [None]
  - INJECTION SITE HAEMORRHAGE [None]
  - INSOMNIA [None]
  - MUSCLE CRAMP [None]
  - NAUSEA [None]
